FAERS Safety Report 10016662 (Version 2)
Quarter: 2014Q2

REPORT INFORMATION
  Report Type: Report from Study
  Country: TR (occurrence: TR)
  Receive Date: 20140317
  Receipt Date: 20140414
  Transmission Date: 20141212
  Serious: Yes (Hospitalization)
  Sender: FDA-Public Use
  Company Number: TR-ABBVIE-14P-161-1212203-00

PATIENT
  Age: 32 Year
  Sex: Female
  Weight: 63 kg

DRUGS (2)
  1. HUMIRA [Suspect]
     Indication: ANKYLOSING SPONDYLITIS
     Route: 058
     Dates: start: 20120615, end: 20140312
  2. HUMIRA [Suspect]
     Route: 058
     Dates: start: 20140402

REACTIONS (2)
  - Ingrowing nail [Recovered/Resolved]
  - High density lipoprotein increased [Unknown]
